FAERS Safety Report 14630671 (Version 1)
Quarter: 2018Q1

REPORT INFORMATION
  Report Type: Spontaneous
  Country: TR (occurrence: TR)
  Receive Date: 20180313
  Receipt Date: 20180313
  Transmission Date: 20180509
  Serious: Yes (Hospitalization)
  Sender: FDA-Public Use
  Company Number: TR-PERRIGO-18TR002261

PATIENT
  Age: 5 Month
  Sex: Female

DRUGS (1)
  1. CLOBETASOL PROPIONATE. [Suspect]
     Active Substance: CLOBETASOL PROPIONATE
     Indication: DERMATITIS
     Dosage: UNKNOWN, EVERY DIAPER CHANGE
     Route: 061

REACTIONS (3)
  - Delayed myelination [Recovered/Resolved]
  - Cushing^s syndrome [Recovered/Resolved]
  - Cerebral atrophy [Recovered/Resolved]
